FAERS Safety Report 24685319 (Version 3)
Quarter: 2024Q4

REPORT INFORMATION
  Report Type: Spontaneous
  Country: TH (occurrence: TH)
  Receive Date: 20241202
  Receipt Date: 20241205
  Transmission Date: 20250115
  Serious: Yes (Hospitalization, Other)
  Sender: PFIZER
  Company Number: TH-MLMSERVICE-20241118-PI259997-00218-3

PATIENT
  Age: 69 Year
  Sex: Female

DRUGS (8)
  1. DOXORUBICIN [Suspect]
     Active Substance: DOXORUBICIN
     Indication: Diffuse large B-cell lymphoma stage IV
     Dosage: UNDERWENT EIGHT CYCLES
  2. METHOTREXATE SODIUM [Suspect]
     Active Substance: METHOTREXATE SODIUM
     Indication: Diffuse large B-cell lymphoma stage IV
     Dosage: UNDERWENT 8 CYCLES
     Route: 037
     Dates: end: 20220902
  3. RITUXIMAB [Suspect]
     Active Substance: RITUXIMAB
     Indication: Diffuse large B-cell lymphoma stage IV
     Dosage: UNDERWENT 8 CYCLES
     Dates: end: 20220902
  4. CYCLOPHOSPHAMIDE [Suspect]
     Active Substance: CYCLOPHOSPHAMIDE
     Indication: Diffuse large B-cell lymphoma stage IV
     Dosage: UNDERWENT 8 CYCLES
  5. DEXAMETHASONE [Suspect]
     Active Substance: DEXAMETHASONE
     Indication: Diffuse large B-cell lymphoma stage IV
     Dosage: 20 MG, 1X/DAY
     Dates: start: 20220412, end: 20220812
  6. PREDNISOLONE [Suspect]
     Active Substance: PREDNISOLONE
     Indication: COVID-19 pneumonia
     Dosage: TAPERING FROM 40 MG TO 15 MG/DAY OVER 60 DAYS)
     Dates: start: 20221209
  7. PREDNISOLONE [Suspect]
     Active Substance: PREDNISOLONE
     Dosage: TAPERING FROM 40 MG TO 15 MG/DAY OVER 60 DAYS)
     Dates: end: 20230209
  8. VINCRISTINE SULFATE [Suspect]
     Active Substance: VINCRISTINE SULFATE
     Indication: Diffuse large B-cell lymphoma stage IV
     Dosage: UNDERWENT EIGHT CYCLES

REACTIONS (2)
  - COVID-19 pneumonia [Recovering/Resolving]
  - Acute respiratory failure [Recovering/Resolving]

NARRATIVE: CASE EVENT DATE: 20221201
